FAERS Safety Report 7727248-2 (Version None)
Quarter: 2011Q3

REPORT INFORMATION
  Report Type: 
  Country: None (occurrence: None)
  Receive Date: 20110902
  Receipt Date: 20110830
  Transmission Date: 20111222
  Serious: Yes (Life-Threatening, Other)
  Sender: FDA-Public Use
  Company Number: DE-B.I. PHARMACEUTICALS,INC./RIDGEFIELD-2010-DE-03910DE

PATIENT
  Sex: Female
  Weight: 125 kg

DRUGS (3)
  1. PRADAXA [Suspect]
     Indication: HIP ARTHROPLASTY
  2. BISOPROLOL FUMARATE [Concomitant]
     Indication: HYPERTENSION
     Dosage: 10 MG
     Route: 048
  3. PRADAXA [Suspect]
     Indication: THROMBOSIS PROPHYLAXIS
     Dosage: 220 MG
     Route: 048
     Dates: start: 20100218, end: 20100221

REACTIONS (3)
  - DIVERTICULAR PERFORATION [None]
  - ANAEMIA [None]
  - ANAL HAEMORRHAGE [None]
